FAERS Safety Report 6157746-7 (Version None)
Quarter: 2009Q2

REPORT INFORMATION
  Report Type: 
  Country: None (occurrence: None)
  Receive Date: 20090416
  Receipt Date: 20090408
  Transmission Date: 20091009
  Serious: Yes (Death)
  Sender: FDA-Public Use
  Company Number: JP-MERCK-0904USA01724

PATIENT
  Age: 60 Year
  Sex: Male

DRUGS (13)
  1. DECADRON [Suspect]
     Indication: HISTIOCYTOSIS HAEMATOPHAGIC
     Route: 048
  2. CYCLOSPORINE [Suspect]
     Indication: HISTIOCYTOSIS HAEMATOPHAGIC
     Route: 065
  3. PREDNISOLONE [Suspect]
     Indication: HISTIOCYTOSIS HAEMATOPHAGIC
     Route: 065
  4. ETOPOSIDE [Suspect]
     Indication: HISTIOCYTOSIS HAEMATOPHAGIC
     Route: 065
  5. CYCLOPHOSPHAMIDE [Concomitant]
     Indication: HISTIOCYTOSIS HAEMATOPHAGIC
     Route: 065
  6. DOXORUBICIN HYDROCHLORIDE [Concomitant]
     Indication: HISTIOCYTOSIS HAEMATOPHAGIC
     Route: 042
  7. ONCOVIN [Concomitant]
     Indication: HISTIOCYTOSIS HAEMATOPHAGIC
     Route: 042
  8. METHYLPREDNISOLONE [Concomitant]
     Indication: INFECTION
     Route: 065
  9. MEROPEN [Concomitant]
     Indication: INFECTION
     Route: 042
  10. MINOCYCLINE HYDROCHLORIDE [Concomitant]
     Indication: INFECTION
     Route: 065
  11. FUNGUARD [Concomitant]
     Indication: INFECTION
     Route: 042
  12. GANCICLOVIR [Concomitant]
     Indication: INFECTION
     Route: 065
  13. PREDNISOLONE [Concomitant]
     Route: 065

REACTIONS (2)
  - MUCORMYCOSIS [None]
  - PULMONARY ALVEOLAR HAEMORRHAGE [None]
